FAERS Safety Report 8987981 (Version 1)
Quarter: 2012Q4

REPORT INFORMATION
  Report Type: 
  Country: GB (occurrence: GB)
  Receive Date: 20121227
  Receipt Date: 20121227
  Transmission Date: 20130627
  Serious: Yes (Hospitalization)
  Sender: FDA-Public Use
  Company Number: GB-TEVA-375913ISR

PATIENT
  Age: 77 Year
  Sex: Male

DRUGS (15)
  1. TRIMETHOPRIM [Suspect]
     Indication: URINARY TRACT INFECTION
     Dosage: 14 doses.
     Route: 048
     Dates: start: 20120811, end: 20120817
  2. INSULIN [Concomitant]
  3. ALLOPURINOL [Concomitant]
  4. SODIUM BICARBONATE [Concomitant]
  5. LANSOPRAZOLE [Concomitant]
  6. RAMIPRIL [Concomitant]
     Dates: end: 20120824
  7. TEMAZEPAM [Concomitant]
  8. QUININE SULPHATE [Concomitant]
  9. FUROSEMIDE [Concomitant]
     Dates: end: 20120824
  10. PARACETAMOL [Concomitant]
  11. CODEINE [Concomitant]
  12. ALFACALCIDOL [Concomitant]
  13. AMITRIPTYLINE [Concomitant]
  14. AMLODIPINE [Concomitant]
  15. ASPIRIN [Concomitant]

REACTIONS (3)
  - Hyperkalaemia [Recovered/Resolved]
  - Renal impairment [Unknown]
  - Blood creatinine increased [Unknown]
